FAERS Safety Report 6207929-2 (Version None)
Quarter: 2009Q2

REPORT INFORMATION
  Report Type: 
  Country: None (occurrence: None)
  Receive Date: 20090529
  Receipt Date: 20080822
  Transmission Date: 20091009
  Serious: No
  Sender: FDA-Public Use
  Company Number: A0745541A

PATIENT
  Age: 69 Year
  Sex: Female
  Weight: 54 kg

DRUGS (12)
  1. FLOLAN [Suspect]
     Indication: PULMONARY ARTERIAL HYPERTENSION
     Dosage: 30NGKM SEE DOSAGE TEXT
     Route: 042
     Dates: start: 20040401
  2. APAP TAB [Concomitant]
     Indication: DRUG USE FOR UNKNOWN INDICATION
     Dosage: 325MG AS REQUIRED
  3. IMODIUM [Concomitant]
     Indication: DRUG USE FOR UNKNOWN INDICATION
     Dosage: 2MG AS REQUIRED
  4. MULTI-VITAMIN [Concomitant]
     Indication: DRUG USE FOR UNKNOWN INDICATION
  5. COUMADIN [Concomitant]
     Indication: DRUG USE FOR UNKNOWN INDICATION
     Dosage: 7.5MG PER DAY
  6. SPIRONOLACTONE [Concomitant]
     Indication: DRUG USE FOR UNKNOWN INDICATION
     Dosage: 50MG PER DAY
  7. TRACLEER [Concomitant]
     Indication: DRUG USE FOR UNKNOWN INDICATION
     Dosage: 62.5MG TWICE PER DAY
  8. IRON [Concomitant]
     Indication: DRUG USE FOR UNKNOWN INDICATION
  9. HYDROCODONE BITARTRATE + ACETAMINOPHEN [Concomitant]
     Indication: DRUG USE FOR UNKNOWN INDICATION
  10. ICAPS [Concomitant]
     Indication: DRUG USE FOR UNKNOWN INDICATION
  11. COENZYME Q10 [Concomitant]
     Indication: DRUG USE FOR UNKNOWN INDICATION
     Dosage: 300MG PER DAY
  12. CALCIUM [Concomitant]
     Indication: DRUG USE FOR UNKNOWN INDICATION

REACTIONS (15)
  - ABDOMINAL DISTENSION [None]
  - BACTERIA URINE IDENTIFIED [None]
  - DEHYDRATION [None]
  - DYSPNOEA [None]
  - ERUCTATION [None]
  - FLATULENCE [None]
  - HAEMOGLOBIN DECREASED [None]
  - HEART RATE INCREASED [None]
  - HEART RATE IRREGULAR [None]
  - MUCOUS STOOLS [None]
  - OXYGEN SATURATION DECREASED [None]
  - PYREXIA [None]
  - RECTAL TENESMUS [None]
  - SALIVA ALTERED [None]
  - VOMITING [None]
